FAERS Safety Report 25652603 (Version 1)
Quarter: 2025Q3

REPORT INFORMATION
  Report Type: Spontaneous
  Country: US (occurrence: US)
  Receive Date: 20250807
  Receipt Date: 20250807
  Transmission Date: 20251021
  Serious: No
  Sender: SANDOZ
  Company Number: US-SANDOZ-SDZ2025US055078

PATIENT
  Age: 89 Year
  Sex: Female

DRUGS (1)
  1. TIMOLOL MALEATE OPHTHALMIC SOLUTION 0.5% [Suspect]
     Active Substance: TIMOLOL MALEATE
     Indication: Product used for unknown indication
     Route: 065

REACTIONS (3)
  - Drug ineffective [Unknown]
  - Product use complaint [Unknown]
  - Product quality issue [Unknown]
